FAERS Safety Report 10349092 (Version 1)
Quarter: 2014Q3

REPORT INFORMATION
  Report Type: Spontaneous
  Country: US (occurrence: US)
  Receive Date: 20140729
  Receipt Date: 20140729
  Transmission Date: 20150326
  Serious: No
  Sender: FDA-Public Use
  Company Number: US-009507513-1407USA012737

PATIENT
  Sex: Male

DRUGS (4)
  1. TEMODAR [Suspect]
     Active Substance: TEMOZOLOMIDE
     Indication: SMALL CELL LUNG CANCER
     Dosage: 140 MG, QD
     Route: 048
     Dates: start: 201401, end: 20140721
  2. ASPIRIN. [Concomitant]
     Active Substance: ASPIRIN
  3. ATORVASTATIN CALCIUM. [Concomitant]
     Active Substance: ATORVASTATIN CALCIUM
  4. PLAVIX [Concomitant]
     Active Substance: CLOPIDOGREL BISULFATE

REACTIONS (1)
  - Liver disorder [Unknown]

NARRATIVE: CASE EVENT DATE: 2014
